FAERS Safety Report 6453379-3 (Version None)
Quarter: 2009Q4

REPORT INFORMATION
  Report Type: 
  Country: None (occurrence: None)
  Receive Date: 20091123
  Receipt Date: 20091123
  Transmission Date: 20100525
  Serious: Yes (Life-Threatening, Disabling, Other)
  Sender: FDA-Public Use
  Company Number: None

PATIENT
  Age: 24 Year
  Sex: Male
  Weight: 101.6057 kg

DRUGS (1)
  1. TRAZODONE HCL [Suspect]
     Indication: INSOMNIA
     Dosage: 1/2 TO 1 TABLET AT BEDTIME PO 7-8 DAYS
     Route: 048
     Dates: start: 20091106, end: 20091113

REACTIONS (10)
  - ANXIETY [None]
  - DEPRESSION [None]
  - DIZZINESS [None]
  - DYSPNOEA [None]
  - HEART RATE IRREGULAR [None]
  - HOSTILITY [None]
  - IRRITABILITY [None]
  - NERVOUSNESS [None]
  - SELF-INJURIOUS IDEATION [None]
  - VIOLENCE-RELATED SYMPTOM [None]
